FAERS Safety Report 7232038-3 (Version None)
Quarter: 2011Q1

REPORT INFORMATION
  Report Type: 
  Country: None (occurrence: None)
  Receive Date: 20110118
  Receipt Date: 20080623
  Transmission Date: 20110831
  Serious: Yes (Hospitalization)
  Sender: FDA-Public Use
  Company Number: PHHY2008FR11968

PATIENT
  Sex: Female

DRUGS (1)
  1. GLEEVEC [Suspect]
     Indication: CHRONIC MYELOID LEUKAEMIA
     Dosage: 400 MG, QD
     Dates: start: 20040801

REACTIONS (4)
  - RADIOTHERAPY [None]
  - WEIGHT INCREASED [None]
  - THYROID CANCER [None]
  - ECHOGRAPHY ABNORMAL [None]
